FAERS Safety Report 12749947 (Version 5)
Quarter: 2016Q4

REPORT INFORMATION
  Report Type: Spontaneous
  Country: US (occurrence: US)
  Receive Date: 20160916
  Receipt Date: 20161121
  Transmission Date: 20170207
  Serious: Yes (Other)
  Sender: FDA-Public Use
  Company Number: US-009507513-1609USA005910

PATIENT
  Age: 70 Year
  Sex: Female
  Weight: 94.3 kg

DRUGS (6)
  1. OXALIPLATIN. [Suspect]
     Active Substance: OXALIPLATIN
     Indication: COLON CANCER
     Dosage: 260 MG (130 MG/M2) OVER TWO HOURS
     Route: 042
     Dates: start: 20160831, end: 20160831
  2. OXALIPLATIN. [Suspect]
     Active Substance: OXALIPLATIN
     Dosage: UNK
     Dates: start: 20160831, end: 20160831
  3. PEPCID [Suspect]
     Active Substance: FAMOTIDINE
     Dosage: 20 MG, UNK
     Route: 042
  4. DECADRON [Suspect]
     Active Substance: DEXAMETHASONE
     Indication: ADVERSE DRUG REACTION
     Dosage: 12 MG, UNK
     Route: 042
  5. XELODA [Concomitant]
     Active Substance: CAPECITABINE
     Indication: COLON CANCER
     Dosage: 1500 MG TABLET, TWICE A DAY
     Route: 048
     Dates: start: 20160822
  6. ALOXI [Suspect]
     Active Substance: PALONOSETRON HYDROCHLORIDE

REACTIONS (5)
  - Transient ischaemic attack [Recovered/Resolved]
  - Product use issue [Unknown]
  - Stridor [Recovered/Resolved]
  - Joint stiffness [Recovered/Resolved]
  - Dyspnoea [Recovered/Resolved]

NARRATIVE: CASE EVENT DATE: 20160831
